FAERS Safety Report 6878679-4 (Version None)
Quarter: 2010Q3

REPORT INFORMATION
  Report Type: 
  Country: None (occurrence: None)
  Receive Date: 20100728
  Receipt Date: 20100722
  Transmission Date: 20110219
  Serious: Yes (Hospitalization)
  Sender: FDA-Public Use
  Company Number: B0656880A

PATIENT
  Sex: Female
  Weight: 65 kg

DRUGS (3)
  1. TYKERB [Suspect]
     Indication: BREAST CANCER
     Dosage: 1250MG PER DAY
     Route: 048
     Dates: start: 20090916, end: 20100506
  2. XELODA [Suspect]
     Indication: BREAST CANCER
     Route: 048
     Dates: start: 20090916
  3. TAXOL [Suspect]
     Indication: BREAST CANCER
     Dosage: 110MG PER DAY
     Route: 042
     Dates: start: 20100303

REACTIONS (5)
  - CELLULITIS [None]
  - DIARRHOEA [None]
  - FEBRILE NEUTROPENIA [None]
  - PYREXIA [None]
  - VOMITING [None]
